FAERS Safety Report 22613344 (Version 1)
Quarter: 2023Q2

REPORT INFORMATION
  Report Type: Spontaneous
  Country: IT (occurrence: IT)
  Receive Date: 20230619
  Receipt Date: 20230619
  Transmission Date: 20230722
  Serious: Yes (Disabling)
  Sender: FDA-Public Use
  Company Number: None

PATIENT
  Age: 37 Year
  Sex: Male
  Weight: 115 kg

DRUGS (3)
  1. HALOPERIDOL DECANOATE [Suspect]
     Active Substance: HALOPERIDOL DECANOATE
     Indication: Schizophrenia
     Route: 065
     Dates: start: 20121101, end: 20151231
  2. HALOPERIDOL [Concomitant]
     Active Substance: HALOPERIDOL
  3. OLANZAPINE [Concomitant]
     Active Substance: OLANZAPINE
     Dates: end: 20151231

REACTIONS (2)
  - Urinary incontinence [Recovering/Resolving]
  - Dysuria [Recovering/Resolving]

NARRATIVE: CASE EVENT DATE: 20150101
